FAERS Safety Report 5069000-5 (Version None)
Quarter: 2006Q3

REPORT INFORMATION
  Report Type: 
  Country: None (occurrence: None)
  Receive Date: 20060802
  Receipt Date: 20050421
  Transmission Date: 20061208
  Serious: Yes (Other)
  Sender: FDA-Public Use
  Company Number: PHEH2005US04598

PATIENT
  Age: 61 Year
  Sex: Female

DRUGS (8)
  1. ZELNORM [Suspect]
     Indication: IRRITABLE BOWEL SYNDROME
     Dosage: 6 MG, QD
     Route: 048
     Dates: start: 20040101, end: 20050510
  2. DETROL [Concomitant]
     Indication: URINARY INCONTINENCE
     Dosage: 4 MG, UNK
     Dates: start: 20030101
  3. TAGAMET [Concomitant]
     Indication: GASTROOESOPHAGEAL REFLUX DISEASE
     Dosage: 400 MG, UNK
     Dates: start: 20030101
  4. MIRAPEX [Concomitant]
     Dosage: 0.25 MG, UNK
     Dates: start: 20030101
  5. VITAMIN B-12 [Concomitant]
     Indication: PERNICIOUS ANAEMIA
     Dates: start: 19850101
  6. TICLID [Concomitant]
     Indication: TRANSIENT ISCHAEMIC ATTACK
     Dates: start: 20040601
  7. PREMARIN [Concomitant]
     Dosage: 0.9 UNK, UNK
  8. DARVOCET [Concomitant]
     Indication: ARTHRITIS
     Dosage: 100/650

REACTIONS (11)
  - ANTIBODY TEST POSITIVE [None]
  - AUTOIMMUNE HEPATITIS [None]
  - BLOOD BILIRUBIN INCREASED [None]
  - BLOOD GLUCOSE INCREASED [None]
  - HAEMOGLOBIN DECREASED [None]
  - HEPATIC FIBROSIS [None]
  - HEPATITIS CHRONIC ACTIVE [None]
  - JAUNDICE [None]
  - OCULAR ICTERUS [None]
  - SPLENOMEGALY [None]
  - YELLOW SKIN [None]
